FAERS Safety Report 5196021-4 (Version None)
Quarter: 2006Q4

REPORT INFORMATION
  Report Type: 
  Country: None (occurrence: None)
  Receive Date: 20061227
  Receipt Date: 20061213
  Transmission Date: 20070319
  Serious: Yes (Other)
  Sender: FDA-Public Use
  Company Number: GXKR2006DE08168

PATIENT
  Age: 54 Year
  Sex: Male

DRUGS (7)
  1. MIRTAZAPINE [Suspect]
     Indication: MAJOR DEPRESSION
     Dosage: CUMULATIVE DOSE: 1100 MG
  2. DIAZEPAM [Suspect]
     Indication: MAJOR DEPRESSION
     Dosage: CUMULATIVE DOSE: 325 MG
  3. TILIDINE (TILIDINE) [Suspect]
     Indication: MAJOR DEPRESSION
     Dosage: CUMULATIVE DOSE: 1400 MG
  4. RISPERIDONE [Suspect]
     Indication: MAJOR DEPRESSION
     Dosage: CUMULATIVE DOSE: 176 MG
  5. MOCLOBEMIDE (NGX) (MOCLOBEMIDE) UNKNOWN [Suspect]
     Indication: MAJOR DEPRESSION
     Dosage: CUMULATIVE DOSE: 6750 MG
  6. PERAZINE (PERAZINE) [Suspect]
     Indication: MAJOR DEPRESSION
     Dosage: CUMULATIVE DOSE: 1800 MG
  7. MAPROTILINE [Suspect]
     Indication: MAJOR DEPRESSION
     Dosage: CUMULATIVE DOSE: 900 MG

REACTIONS (3)
  - DELIRIUM [None]
  - DEMENTIA ALZHEIMER'S TYPE [None]
  - PROTEIN TOTAL INCREASED [None]
